FAERS Safety Report 13548348 (Version 1)
Quarter: 2017Q2

REPORT INFORMATION
  Report Type: Spontaneous
  Country: US (occurrence: US)
  Receive Date: 20170516
  Receipt Date: 20170516
  Transmission Date: 20170830
  Serious: No
  Sender: FDA-Public Use
  Company Number: US-JNJFOC-20170324701

PATIENT
  Age: 73 Year
  Sex: Female
  Weight: 50.8 kg

DRUGS (13)
  1. OMEGA 3 [Concomitant]
     Active Substance: OMEGA-3 FATTY ACIDS
     Indication: ROUTINE HEALTH MAINTENANCE
     Dosage: DAILY,YEARS
     Route: 065
  2. MEGAFLORA [Concomitant]
     Route: 065
  3. TRAZODONE [Concomitant]
     Active Substance: TRAZODONE HYDROCHLORIDE
     Indication: INSOMNIA
     Dosage: DAILY, ONE MONTH
     Route: 065
  4. IRON [Concomitant]
     Active Substance: IRON
     Indication: ROUTINE HEALTH MAINTENANCE
     Dosage: 3 MONTHS
     Route: 065
  5. ZINC PICOLINATE [Concomitant]
     Active Substance: ZINC PICOLINATE
     Indication: ROUTINE HEALTH MAINTENANCE
     Dosage: DAILY, 6 MONTHS
     Route: 065
  6. COQ10 [Concomitant]
     Active Substance: UBIDECARENONE
     Indication: CARDIAC DISORDER
     Dosage: DAILY, 1 YEAR
     Route: 065
  7. SELENIUM [Concomitant]
     Active Substance: SELENIUM
     Indication: ROUTINE HEALTH MAINTENANCE
     Dosage: 2 YEARS
     Route: 065
  8. PHOSPHATIDYL CHOLINE [Concomitant]
     Active Substance: LECITHIN
     Indication: ROUTINE HEALTH MAINTENANCE
     Dosage: DAILY, 2 YEARS
     Route: 065
  9. MULTIVITAMINS [Concomitant]
     Active Substance: VITAMINS
     Indication: ROUTINE HEALTH MAINTENANCE
     Dosage: 2 MONTHS
     Route: 065
  10. COPPER [Concomitant]
     Active Substance: COPPER
     Indication: ROUTINE HEALTH MAINTENANCE
     Dosage: WEEKLY, 3 YEARS
     Route: 065
  11. HOMOCYSTEINE FORMULA [Concomitant]
     Indication: ROUTINE HEALTH MAINTENANCE
     Dosage: DAILY, 5 YEARS
     Route: 065
  12. WOMENS ROGAINE UNSCENTED [Suspect]
     Active Substance: MINOXIDIL
     Route: 061
  13. WOMENS ROGAINE UNSCENTED [Suspect]
     Active Substance: MINOXIDIL
     Indication: ALOPECIA
     Dosage: ONE SQUIRT
     Route: 061
     Dates: start: 2017

REACTIONS (2)
  - Alopecia [Not Recovered/Not Resolved]
  - Product use in unapproved indication [Not Recovered/Not Resolved]

NARRATIVE: CASE EVENT DATE: 2017
